FAERS Safety Report 16423573 (Version 2)
Quarter: 2019Q3

REPORT INFORMATION
  Report Type: Report from Study
  Country: US (occurrence: US)
  Receive Date: 20190613
  Receipt Date: 20190822
  Transmission Date: 20191004
  Serious: Yes (Other)
  Sender: FDA-Public Use
  Company Number: US-BIOGEN-2019BI00749780

PATIENT
  Sex: Female

DRUGS (1)
  1. TYSABRI [Suspect]
     Active Substance: NATALIZUMAB
     Indication: MULTIPLE SCLEROSIS
     Route: 065
     Dates: start: 20180320, end: 20190301

REACTIONS (3)
  - Diabetes mellitus [Unknown]
  - Treatment noncompliance [Unknown]
  - Tuberculosis [Unknown]
